FAERS Safety Report 9238115 (Version 1)
Quarter: 2013Q1

REPORT INFORMATION
  Report Type: Spontaneous
  Country: US (occurrence: None)
  Receive Date: 20121107
  Receipt Date: 20121107
  Transmission Date: 20140127
  Serious: No
  Sender: FDA-Public Use
  Company Number: 2012HGS-003799

PATIENT
  Sex: Female
  Weight: 101.61 kg

DRUGS (13)
  1. BENLYSTA [Suspect]
     Indication: SYSTEMIC LUPUS ERYTHEMATOSUS
     Dates: start: 20120516
  2. PLAQUENIL (HYDROXYCHLOROQUINE) [Concomitant]
  3. PREDNISONE (PREDNISONE) [Concomitant]
  4. METHOTREXATE [Concomitant]
  5. ARMOUR THYROID (THYROID) [Concomitant]
  6. LOSARTAN HCTZ (HYZAAR) (HYDROCHLOROTHIAZIDE, LOSARTAN POTASSIUM) [Concomitant]
  7. FOLIC ACID (FOLIC ACID) [Concomitant]
  8. B COMPLEX VITAMIN (NICOTINAM W/PYRIDOXHCL/RIBOFL/THIAM.HCL) [Concomitant]
  9. SHEA (PRASTERONE) [Concomitant]
  10. GABAPENTIN (GABAPENTIN) [Concomitant]
  11. LORAZEPAM (LORAZEPAM) [Concomitant]
  12. LORAZEPAM (LORAZEPAM) [Concomitant]
  13. MULTIVITAMIN (VIGRAN) (ERGOCALCIFEOL, ASCORBIC ACID, PYRIDOXINE HYDROCHLORIDE, THIAMINE HYDROCHLORIDE, RETINOL, RIBOFLAVIN, NICOTINAMIDE, CALCIUM PANTHOTHENATE) [Concomitant]

REACTIONS (1)
  - Pain in extremity [None]
